FAERS Safety Report 16590481 (Version 1)
Quarter: 2019Q3

REPORT INFORMATION
  Report Type: Spontaneous
  Country: US (occurrence: US)
  Receive Date: 20190717
  Receipt Date: 20190717
  Transmission Date: 20191004
  Serious: Yes (Hospitalization)
  Sender: FDA-Public Use
  Company Number: None

PATIENT
  Age: 35 Year
  Sex: Female
  Weight: 51.75 kg

DRUGS (5)
  1. BIRTH CONTROL [Concomitant]
     Active Substance: UNSPECIFIED INGREDIENT
  2. BIOTEN [Concomitant]
  3. QBREXZA [Suspect]
     Active Substance: GLYCOPYRRONIUM TOSYLATE
     Indication: HYPERHIDROSIS
  4. ADDERALL [Concomitant]
     Active Substance: AMPHETAMINE ASPARTATE\AMPHETAMINE SULFATE\DEXTROAMPHETAMINE SACCHARATE\DEXTROAMPHETAMINE SULFATE
  5. BACKLOFEN [Concomitant]

REACTIONS (4)
  - Mydriasis [None]
  - Hypertension [None]
  - Tachycardia [None]
  - Dysuria [None]

NARRATIVE: CASE EVENT DATE: 20190509
